FAERS Safety Report 23144934 (Version 1)
Quarter: 2023Q4

REPORT INFORMATION
  Report Type: Spontaneous
  Country: US (occurrence: US)
  Receive Date: 20231103
  Receipt Date: 20231103
  Transmission Date: 20240110
  Serious: Yes (Other)
  Sender: FDA-Public Use
  Company Number: US-BRISTOL-MYERS SQUIBB COMPANY-2023-140983

PATIENT
  Age: 44 Year
  Sex: Male

DRUGS (4)
  1. SPRYCEL [Suspect]
     Active Substance: DASATINIB
     Indication: Chronic myeloid leukaemia
     Route: 048
     Dates: start: 20200831
  2. SPRYCEL [Suspect]
     Active Substance: DASATINIB
     Route: 048
     Dates: start: 202202
  3. GLEEVEC [Concomitant]
     Active Substance: IMATINIB MESYLATE
     Indication: Product used for unknown indication
     Dosage: 28-SEP-2020
     Dates: end: 202008
  4. HYDREA [Concomitant]
     Active Substance: HYDROXYUREA
     Indication: Product used for unknown indication
     Dates: start: 20200418, end: 202005

REACTIONS (1)
  - Chronic myeloid leukaemia [Not Recovered/Not Resolved]

NARRATIVE: CASE EVENT DATE: 20230711
